APPROVED DRUG PRODUCT: PROCOMP
Active Ingredient: PROCHLORPERAZINE MALEATE
Strength: EQ 10MG BASE
Dosage Form/Route: TABLET;ORAL
Application: A040268 | Product #002 | TE Code: AB
Applicant: JUBILANT CADISTA PHARMACEUTICALS INC
Approved: Feb 27, 1998 | RLD: No | RS: Yes | Type: RX